FAERS Safety Report 23095862 (Version 1)
Quarter: 2023Q4

REPORT INFORMATION
  Report Type: Spontaneous
  Country: US (occurrence: None)
  Receive Date: 20231023
  Receipt Date: 20231023
  Transmission Date: 20240110
  Serious: Yes (Other)
  Sender: FDA-Public Use
  Company Number: US-ROCHE-3438770

PATIENT
  Age: 87 Year
  Sex: Female

DRUGS (1)
  1. VABYSMO [Suspect]
     Active Substance: FARICIMAB\FARICIMAB-SVOA
     Indication: Neovascular age-related macular degeneration
     Dosage: IN BOTH EYE. ?ON 18/JULY/2023, SHE RECEIVED MOST RECENT DOSE OF VABYSMO IN BOTH EYES.
     Route: 050

REACTIONS (4)
  - Retinal artery occlusion [Unknown]
  - Visual impairment [Recovered/Resolved]
  - Acute macular neuroretinopathy [Unknown]
  - Vitritis [Unknown]

NARRATIVE: CASE EVENT DATE: 20230808
